FAERS Safety Report 24260460 (Version 2)
Quarter: 2024Q4

REPORT INFORMATION
  Report Type: Spontaneous
  Country: PT (occurrence: PT)
  Receive Date: 20240828
  Receipt Date: 20241108
  Transmission Date: 20250115
  Serious: Yes (Hospitalization, Other)
  Sender: SANOFI AVENTIS
  Company Number: PT-SA-2024SA251233

PATIENT
  Age: 27 Year
  Sex: Female

DRUGS (5)
  1. RIFAMPIN [Suspect]
     Active Substance: RIFAMPIN
     Indication: Disseminated tuberculosis
     Dosage: UNK
     Dates: start: 20190912, end: 20191216
  2. RIFAMPIN [Suspect]
     Active Substance: RIFAMPIN
     Dosage: 300 UNK
     Dates: start: 20200108
  3. ISONIAZID [Suspect]
     Active Substance: ISONIAZID
     Indication: Disseminated tuberculosis
     Dosage: UNK
     Dates: start: 20190912, end: 20191216
  4. ISONIAZID [Suspect]
     Active Substance: ISONIAZID
     Dosage: 300 UNK
     Dates: start: 20200108
  5. VITAMIN B6 [Concomitant]
     Active Substance: PYRIDOXINE HYDROCHLORIDE
     Indication: Disseminated tuberculosis
     Dosage: UNK
     Dates: start: 20190912, end: 20191216

REACTIONS (4)
  - Posterior reversible encephalopathy syndrome [Recovered/Resolved]
  - Headache [Recovered/Resolved]
  - Paradoxical drug reaction [Recovered/Resolved]
  - Renovascular hypertension [Recovered/Resolved]

NARRATIVE: CASE EVENT DATE: 20191209
